FAERS Safety Report 17610813 (Version 1)
Quarter: 2020Q2

REPORT INFORMATION
  Report Type: Spontaneous
  Country: GB (occurrence: GB)
  Receive Date: 20200401
  Receipt Date: 20200401
  Transmission Date: 20200713
  Serious: Yes (Hospitalization, Other)
  Sender: FDA-Public Use
  Company Number: NVSC2020GB087593

PATIENT
  Sex: Female
  Weight: 57 kg

DRUGS (1)
  1. COSENTYX [Suspect]
     Active Substance: SECUKINUMAB
     Indication: PSORIASIS
     Dosage: 300 MG, UNKNOWN
     Route: 065
     Dates: start: 20180911, end: 20190206

REACTIONS (3)
  - Streptococcal infection [Unknown]
  - Maternal exposure during pregnancy [Recovered/Resolved]
  - Postpartum disorder [Unknown]

NARRATIVE: CASE EVENT DATE: 20190610
